FAERS Safety Report 9015971 (Version 3)
Quarter: 2013Q3

REPORT INFORMATION
  Report Type: Report from Study
  Country: BR (occurrence: BR)
  Receive Date: 20130116
  Receipt Date: 20130709
  Transmission Date: 20140515
  Serious: Yes (Other)
  Sender: FDA-Public Use
  Company Number: PHHY2013BR002712

PATIENT
  Age: 61 Year
  Sex: Female
  Weight: 80 kg

DRUGS (4)
  1. FORASEQ [Suspect]
     Indication: ALLERGIC BRONCHITIS
     Dosage: 1 DF, QD
  2. FORASEQ [Suspect]
     Dosage: 1 DF, QD
  3. LOSARTAN POTASSIUM [Concomitant]
     Indication: HYPERTENSION
     Dosage: 2 DF, UNK ( IN MORNING)
     Route: 048
     Dates: start: 2011
  4. OMEPRAZOLE [Concomitant]
     Indication: HIATUS HERNIA
     Dosage: UNK (1 CAPSULE IN MORNING AND 1 CAPSULE IN NIGHT)
     Route: 048
     Dates: start: 20130108

REACTIONS (8)
  - Drug dependence [Recovering/Resolving]
  - Dyspnoea [Recovering/Resolving]
  - Wheezing [Recovering/Resolving]
  - Anxiety [Recovering/Resolving]
  - Hypersensitivity [Recovering/Resolving]
  - Cough [Recovering/Resolving]
  - Device malfunction [Unknown]
  - Incorrect dose administered [Unknown]
